FAERS Safety Report 13612034 (Version 4)
Quarter: 2017Q3

REPORT INFORMATION
  Report Type: Spontaneous
  Country: US (occurrence: US)
  Receive Date: 20170605
  Receipt Date: 20170818
  Transmission Date: 20171127
  Serious: No
  Sender: FDA-Public Use
  Company Number: US-PFIZER INC-2017243793

PATIENT
  Age: 36 Year
  Sex: Female

DRUGS (7)
  1. BAYER ASPIRIN [Suspect]
     Active Substance: ASPIRIN
     Indication: MUSCULOSKELETAL PAIN
     Dosage: UNK
  2. IBUPROFEN. [Suspect]
     Active Substance: IBUPROFEN
     Indication: NECK PAIN
  3. ADVIL [Suspect]
     Active Substance: IBUPROFEN
     Indication: HEADACHE
     Dosage: 400 MG, (TWO PILLS LAST NIGHT)
     Route: 048
     Dates: start: 20170530
  4. IBUPROFEN. [Suspect]
     Active Substance: IBUPROFEN
     Indication: BACK PAIN
  5. BAYER ASPIRIN [Suspect]
     Active Substance: ASPIRIN
     Indication: NECK PAIN
  6. BAYER ASPIRIN [Suspect]
     Active Substance: ASPIRIN
     Indication: BACK PAIN
  7. IBUPROFEN. [Suspect]
     Active Substance: IBUPROFEN
     Indication: MUSCULOSKELETAL PAIN
     Dosage: UNK
     Route: 048

REACTIONS (8)
  - Nausea [Unknown]
  - Insomnia [Unknown]
  - Feeling abnormal [Unknown]
  - Poor quality drug administered [Unknown]
  - Drug ineffective [Unknown]
  - Product colour issue [Unknown]
  - Product quality issue [Unknown]
  - Feeling drunk [Unknown]

NARRATIVE: CASE EVENT DATE: 20170530
